FAERS Safety Report 6627155-2 (Version None)
Quarter: 2010Q1

REPORT INFORMATION
  Report Type: 
  Country: None (occurrence: None)
  Receive Date: 20100311
  Receipt Date: 20091103
  Transmission Date: 20100710
  Serious: No
  Sender: FDA-Public Use
  Company Number: A0814672A

PATIENT
  Age: 34 Year
  Sex: Male

DRUGS (2)
  1. NICOTINE POLACRILEX [Suspect]
     Dates: start: 20091031
  2. NICODERM CQ [Suspect]

REACTIONS (5)
  - DRUG INEFFECTIVE [None]
  - EAR PAIN [None]
  - GLOSSITIS [None]
  - INTENTIONAL DRUG MISUSE [None]
  - PAIN IN JAW [None]
